FAERS Safety Report 6896030-0 (Version None)
Quarter: 2010Q3

REPORT INFORMATION
  Report Type: 
  Country: None (occurrence: None)
  Receive Date: 20100802
  Receipt Date: 20100721
  Transmission Date: 20110219
  Serious: Yes (Death)
  Sender: FDA-Public Use
  Company Number: A0785985A

PATIENT
  Age: 52 Year
  Sex: Female
  Weight: 52.3 kg

DRUGS (3)
  1. AVANDIA [Suspect]
     Dosage: 4MG PER DAY
     Route: 048
     Dates: start: 20030401, end: 20070301
  2. AVANDAMET [Suspect]
     Route: 048
     Dates: start: 20050501, end: 20050801
  3. LANTUS [Concomitant]

REACTIONS (3)
  - ARTERIOSCLEROSIS [None]
  - MACULAR OEDEMA [None]
  - MYOCARDIAL INFARCTION [None]
